FAERS Safety Report 10067298 (Version 1)
Quarter: 2014Q2

REPORT INFORMATION
  Report Type: Spontaneous
  Country: US (occurrence: None)
  Receive Date: 20140408
  Receipt Date: 20140408
  Transmission Date: 20141212
  Serious: Yes (Other)
  Sender: FDA-Public Use
  Company Number: None

PATIENT
  Age: 66 Year
  Sex: Female
  Weight: 54.43 kg

DRUGS (1)
  1. LATISSE 0.03% ALLERGAN [Suspect]
     Indication: MADAROSIS
     Dosage: BRUSH AMOUNT
     Route: 061
     Dates: start: 20140212, end: 20140223

REACTIONS (5)
  - Visual impairment [None]
  - Eyelid oedema [None]
  - Chalazion [None]
  - Rash pustular [None]
  - Injury corneal [None]
